FAERS Safety Report 19310278 (Version 1)
Quarter: 2021Q2

REPORT INFORMATION
  Report Type: Spontaneous
  Country: US (occurrence: US)
  Receive Date: 20210526
  Receipt Date: 20210526
  Transmission Date: 20210717
  Serious: Yes (Hospitalization, Other)
  Sender: FDA-Public Use
  Company Number: NVSC2021US115214

PATIENT
  Age: 67 Year
  Sex: Female
  Weight: 77.56 kg

DRUGS (2)
  1. TEGRETOL [Suspect]
     Active Substance: CARBAMAZEPINE
     Dosage: 300 MG, BID (SINCE 5 MONTHS)
     Route: 065
  2. TEGRETOL [Suspect]
     Active Substance: CARBAMAZEPINE
     Indication: TRIGEMINAL NEURALGIA
     Dosage: 200 MG, BID (ANOTHER OUTBREAK SO NOW HER DOSE WAS 300MG)
     Route: 065

REACTIONS (15)
  - Chest pain [Not Recovered/Not Resolved]
  - Autonomic nervous system imbalance [Unknown]
  - Tooth infection [Unknown]
  - Bradycardia [Unknown]
  - Blood pressure abnormal [Unknown]
  - Dyspnoea [Unknown]
  - Dizziness [Unknown]
  - Trigeminal neuralgia [Unknown]
  - Eructation [Unknown]
  - Tremor [Unknown]
  - Paraesthesia [Unknown]
  - Postural orthostatic tachycardia syndrome [Unknown]
  - Dyspepsia [Unknown]
  - Tachycardia [Unknown]
  - Asthenia [Unknown]

NARRATIVE: CASE EVENT DATE: 20210228
